FAERS Safety Report 8402473-6 (Version None)
Quarter: 2012Q2

REPORT INFORMATION
  Report Type: 
  Country: None (occurrence: None)
  Receive Date: 20120601
  Receipt Date: 20110726
  Transmission Date: 20120825
  Serious: No
  Sender: FDA-Public Use
  Company Number: US-NOVEN-11US002850

PATIENT
  Sex: Female

DRUGS (4)
  1. FOCALIN [Concomitant]
     Indication: ATTENTION DEFICIT/HYPERACTIVITY DISORDER
     Dosage: 1  TABLET AC
     Route: 048
  2. DAYTRANA [Suspect]
     Indication: ATTENTION DEFICIT/HYPERACTIVITY DISORDER
     Dosage: 30 MG, QD, 9 HOURS
     Route: 062
  3. DAYTRANA [Suspect]
     Dosage: 30 MG, QD, 9 HOURS
     Route: 062
  4. INTUNIV [Concomitant]
     Indication: ATTENTION DEFICIT/HYPERACTIVITY DISORDER
     Dosage: 1 TABLET, BEDTIME
     Route: 048

REACTIONS (5)
  - PRODUCT QUALITY ISSUE [None]
  - DEVICE BREAKAGE [None]
  - NO ADVERSE EVENT [None]
  - WRONG TECHNIQUE IN DRUG USAGE PROCESS [None]
  - DRUG ADMINISTRATION ERROR [None]
